FAERS Safety Report 7529571-3 (Version None)
Quarter: 2011Q2

REPORT INFORMATION
  Report Type: 
  Country: None (occurrence: None)
  Receive Date: 20110531
  Receipt Date: 20110523
  Transmission Date: 20111010
  Serious: Yes (Death)
  Sender: FDA-Public Use
  Company Number: 2011040108

PATIENT
  Age: 90 Year
  Sex: Male

DRUGS (4)
  1. DURAGESIC-100 [Concomitant]
  2. OXYCONTIN [Concomitant]
  3. PERCOCET [Concomitant]
  4. ONSOLIS [Suspect]
     Indication: BREAKTHROUGH PAIN
     Dosage: TO BE TITRATED UP TO 4-200 MCG;  FILMS (UP TO FOUR TIMES DAILY), BU
     Route: 002
     Dates: start: 20100826

REACTIONS (2)
  - LUNG NEOPLASM MALIGNANT [None]
  - NEOPLASM PROGRESSION [None]
